FAERS Safety Report 9447582 (Version 1)
Quarter: 2013Q3

REPORT INFORMATION
  Report Type: Spontaneous
  Country: US (occurrence: US)
  Receive Date: 20130808
  Receipt Date: 20130808
  Transmission Date: 20140515
  Serious: Yes (Other)
  Sender: FDA-Public Use
  Company Number: US-JNJFOC-20130800601

PATIENT
  Sex: Female
  Weight: 68.04 kg

DRUGS (1)
  1. REMICADE [Suspect]
     Indication: ARTHRITIS
     Route: 042

REACTIONS (5)
  - Cataract [Not Recovered/Not Resolved]
  - Glaucoma [Not Recovered/Not Resolved]
  - Hyperthyroidism [Not Recovered/Not Resolved]
  - Feeding disorder [Not Recovered/Not Resolved]
  - Vomiting [Not Recovered/Not Resolved]
